FAERS Safety Report 5512805-4 (Version None)
Quarter: 2007Q4

REPORT INFORMATION
  Report Type: 
  Country: None (occurrence: None)
  Receive Date: 20071108
  Receipt Date: 20071025
  Transmission Date: 20080405
  Serious: Yes (Other)
  Sender: FDA-Public Use
  Company Number: 07-002097

PATIENT
  Age: 55 Year
  Sex: Female

DRUGS (1)
  1. TACLONEX [Suspect]
     Indication: PSORIASIS
     Dosage: 0.005 %, TOPICAL
     Route: 061

REACTIONS (3)
  - ANGIOEDEMA [None]
  - DRUG ABUSER [None]
  - GENERALISED OEDEMA [None]
